FAERS Safety Report 10023773 (Version 1)
Quarter: 2014Q1

REPORT INFORMATION
  Report Type: Spontaneous
  Country: US (occurrence: None)
  Receive Date: 20140319
  Receipt Date: 20140319
  Transmission Date: 20141002
  Serious: Yes (Other)
  Sender: FDA-Public Use
  Company Number: None

PATIENT
  Age: 65 Year
  Sex: Male

DRUGS (5)
  1. EFFIENT [Suspect]
     Dosage: 1 TABLET
     Route: 048
     Dates: start: 20140308, end: 20140311
  2. BUPROPION [Concomitant]
  3. CRESTOR [Concomitant]
  4. ASPIRIN [Concomitant]
  5. DIPHENHYDRAMINE [Concomitant]

REACTIONS (3)
  - Dizziness [None]
  - Nausea [None]
  - Rash [None]
